FAERS Safety Report 7091448-8 (Version None)
Quarter: 2010Q4

REPORT INFORMATION
  Report Type: 
  Country: None (occurrence: None)
  Receive Date: 20101105
  Receipt Date: 20101105
  Transmission Date: 20110411
  Serious: Yes (Hospitalization)
  Sender: FDA-Public Use
  Company Number: None

PATIENT
  Age: 61 Year
  Sex: Female
  Weight: 72.7 kg

DRUGS (4)
  1. VINORELBINE [Suspect]
  2. ZIAC [Concomitant]
  3. ATIVAN [Concomitant]
  4. ZOFRAN [Concomitant]

REACTIONS (2)
  - NAUSEA [None]
  - VOMITING [None]
